FAERS Safety Report 4889433-7 (Version None)
Quarter: 2006Q1

REPORT INFORMATION
  Report Type: 
  Country: None (occurrence: None)
  Receive Date: 20060124
  Receipt Date: 20060113
  Transmission Date: 20060701
  Serious: Yes (Death, Hospitalization, Other)
  Sender: FDA-Public Use
  Company Number: PHEH2006US00923

PATIENT
  Age: 72 Year
  Sex: Male

DRUGS (6)
  1. CLOZARIL [Suspect]
     Indication: PSYCHOTIC DISORDER
     Dosage: 12.5 QAM, 62.5 QPM
     Route: 048
     Dates: start: 20020101, end: 20051220
  2. SINEMET [Concomitant]
     Dates: end: 20051220
  3. COMTAN [Concomitant]
     Dates: end: 20051220
  4. LOTREL [Concomitant]
     Dates: end: 20051220
  5. GALANTAMINE HYDROBROMIDE [Concomitant]
     Dates: end: 20051220
  6. REMERON [Concomitant]
     Dates: end: 20051220

REACTIONS (5)
  - ARTHRALGIA [None]
  - BACK PAIN [None]
  - CONVULSION [None]
  - PNEUMONIA [None]
  - PNEUMONIA ASPIRATION [None]
